FAERS Safety Report 6477872-2 (Version None)
Quarter: 2009Q4

REPORT INFORMATION
  Report Type: 
  Country: None (occurrence: None)
  Receive Date: 20091207
  Receipt Date: 20091126
  Transmission Date: 20100525
  Serious: Yes (Death)
  Sender: FDA-Public Use
  Company Number: DE-JNJFOC-20091108115

PATIENT
  Sex: Female

DRUGS (6)
  1. REOPRO [Suspect]
     Indication: ACUTE MYOCARDIAL INFARCTION
     Dosage: BETWEEN 09:19 AND 09:20
     Route: 016
  2. REOPRO [Suspect]
     Dosage: STARTED@ 11:00. COMPLETED @22:00
     Route: 042
  3. CLOPIDOGREL [Concomitant]
     Dosage: @ 0:00
  4. ACETYLSALICYLIC ACID [Concomitant]
  5. METFORMIN HCL [Concomitant]
  6. ANTIHYPERTENSIVE [Concomitant]

REACTIONS (2)
  - ARRHYTHMIA [None]
  - INCORRECT ROUTE OF DRUG ADMINISTRATION [None]
